FAERS Safety Report 15722078 (Version 3)
Quarter: 2019Q3

REPORT INFORMATION
  Report Type: Spontaneous
  Country: US (occurrence: US)
  Receive Date: 20181214
  Receipt Date: 20190718
  Transmission Date: 20191004
  Serious: No
  Sender: FDA-Public Use
  Company Number: US-PFIZER INC-2018515023

PATIENT
  Age: 62 Year
  Sex: Male
  Weight: 95 kg

DRUGS (4)
  1. INSULIN [Concomitant]
     Active Substance: INSULIN NOS
     Indication: GLYCOSYLATED HAEMOGLOBIN ABNORMAL
     Dosage: 40 DAILY
  2. LYRICA [Suspect]
     Active Substance: PREGABALIN
     Dosage: 75 MG, 2X/DAY
     Route: 048
     Dates: start: 20181216
  3. LYRICA [Suspect]
     Active Substance: PREGABALIN
     Indication: BACK PAIN
     Dosage: 75 MG, 2X/DAY
     Route: 048
     Dates: start: 20181216
  4. INSULIN [Concomitant]
     Active Substance: INSULIN NOS
     Dosage: 25 2X/DAY (INCREASING INSULIN FROM 40 DAILY TO 25 BID)

REACTIONS (3)
  - Fatigue [Unknown]
  - Temperature intolerance [Unknown]
  - Drug ineffective [Unknown]
